FAERS Safety Report 5007519-3 (Version None)
Quarter: 2006Q2

REPORT INFORMATION
  Report Type: 
  Country: None (occurrence: None)
  Receive Date: 20060522
  Receipt Date: 20060424
  Transmission Date: 20061013
  Serious: Yes (Hospitalization)
  Sender: FDA-Public Use
  Company Number: PHRM2006FR01416

PATIENT
  Age: 16 Year
  Sex: Female

DRUGS (5)
  1. SYNTOCINON [Suspect]
     Indication: INDUCED LABOUR
     Dosage: 10 IU/ML, ONCE/SINGLE
     Dates: start: 20060313, end: 20060313
  2. SYNTOCINON [Suspect]
     Dosage: 5 IU/ML, TWICE
     Route: 042
     Dates: start: 20060313, end: 20060313
  3. VOLUVEN [Concomitant]
     Dosage: UNK, UNK
     Dates: start: 20060313
  4. NALADOR [Suspect]
     Indication: UTERINE ATONY
     Dosage: UNK, UNK
     Dates: start: 20060313, end: 20060313
  5. CYTOTEC [Concomitant]
     Indication: INDUCED LABOUR
     Dosage: 200 UG, ONCE/SINGLE
     Route: 048
     Dates: start: 20060313, end: 20060313

REACTIONS (9)
  - BLADDER CATHETERISATION [None]
  - CEREBROVASCULAR SPASM [None]
  - COMA [None]
  - MIOSIS [None]
  - MOVEMENT DISORDER [None]
  - THERAPEUTIC EMBOLISATION [None]
  - UNRESPONSIVE TO PAIN STIMULI [None]
  - UTERINE ATONY [None]
  - UTERINE HAEMORRHAGE [None]
